FAERS Safety Report 8574197-6 (Version None)
Quarter: 2012Q3

REPORT INFORMATION
  Report Type: 
  Country: None (occurrence: None)
  Receive Date: 20120806
  Receipt Date: 20120730
  Transmission Date: 20120928
  Serious: Yes (Death, Hospitalization)
  Sender: FDA-Public Use
  Company Number: US-BAXTER-2012BAX011303

PATIENT
  Sex: Male

DRUGS (3)
  1. DIANEAL LOW CALCIUM W/ DEXTROSE 1.5% [Suspect]
     Indication: PERITONEAL DIALYSIS
     Route: 033
     Dates: end: 20120718
  2. DIANEAL [Suspect]
     Route: 033
     Dates: end: 20120718
  3. DIANEAL [Suspect]
     Indication: PERITONEAL DIALYSIS
     Route: 033
     Dates: end: 20120718

REACTIONS (4)
  - MYOCARDIAL INFARCTION [None]
  - HEAD INJURY [None]
  - CERVICAL VERTEBRAL FRACTURE [None]
  - FALL [None]
